FAERS Safety Report 6901851-1 (Version None)
Quarter: 2010Q3

REPORT INFORMATION
  Report Type: 
  Country: None (occurrence: None)
  Receive Date: 20100802
  Receipt Date: 20100802
  Transmission Date: 20110219
  Serious: Yes (Hospitalization)
  Sender: FDA-Public Use
  Company Number: None

PATIENT
  Age: 72 Year
  Sex: Female
  Weight: 104.7809 kg

DRUGS (19)
  1. AVELOX [Suspect]
     Indication: SEPSIS
     Dosage: 400MG DAILY PO
     Route: 048
     Dates: start: 20100708, end: 20100711
  2. AVELOX [Suspect]
     Indication: STAPHYLOCOCCAL INFECTION
     Dosage: 400MG/250ML DAILY IV
     Route: 042
     Dates: start: 20100720, end: 20100722
  3. ASPIRIN [Concomitant]
  4. MAGNESIUM [Concomitant]
  5. FUROSEMIDE [Concomitant]
  6. CYANOCOBALAMIN [Concomitant]
  7. ENOXAPARIN SODIUM [Concomitant]
  8. DOMEBORO POWDER [Concomitant]
  9. DOXYCYCLINE HYCLATE [Concomitant]
  10. WARFARIN [Concomitant]
  11. POTASSIUM CHLORIDE [Concomitant]
  12. FERROUS SULFATE [Concomitant]
  13. DOCUSATE [Concomitant]
  14. MULTI-VITAMIN [Concomitant]
  15. ASCORBIC ACID [Concomitant]
  16. ZINC SULFATE [Concomitant]
  17. MUPIROCIN CREAM [Concomitant]
  18. SODIUM CHLORIDE [Concomitant]
  19. VANCOMYCIN [Concomitant]

REACTIONS (1)
  - WHITE BLOOD CELL COUNT DECREASED [None]
